FAERS Safety Report 21957954 (Version 1)
Quarter: 2023Q1

REPORT INFORMATION
  Report Type: Spontaneous
  Country: US (occurrence: US)
  Receive Date: 20230206
  Receipt Date: 20230206
  Transmission Date: 20230418
  Serious: No
  Sender: FDA-Public Use
  Company Number: US-BAUSCH-BL-2023-001595

PATIENT
  Age: 60 Year
  Sex: Male
  Weight: 89.438 kg

DRUGS (6)
  1. XIFAXAN [Suspect]
     Active Substance: RIFAXIMIN
     Indication: Hyperammonaemia
     Route: 048
     Dates: start: 20221230, end: 20230127
  2. XIFAXAN [Suspect]
     Active Substance: RIFAXIMIN
     Indication: Hepatic function abnormal
  3. SIMVASTATIN [Concomitant]
     Active Substance: SIMVASTATIN
     Indication: Product used for unknown indication
  4. OMEPRAZOLE [Concomitant]
     Active Substance: OMEPRAZOLE
     Indication: Product used for unknown indication
  5. ALLOPURINOL [Concomitant]
     Active Substance: ALLOPURINOL
     Indication: Product used for unknown indication
  6. INSULIN NOS [Concomitant]
     Active Substance: INSULIN NOS
     Indication: Product used for unknown indication

REACTIONS (6)
  - Somnolence [Unknown]
  - Confusional state [Unknown]
  - Memory impairment [Unknown]
  - Arthralgia [Unknown]
  - Dizziness [Unknown]
  - Nausea [Unknown]
